FAERS Safety Report 9744284 (Version 2)
Quarter: 2013Q4

REPORT INFORMATION
  Report Type: Spontaneous
  Country: US (occurrence: US)
  Receive Date: 20131210
  Receipt Date: 20131210
  Transmission Date: 20140711
  Serious: Yes (Life-Threatening, Hospitalization, Other)
  Sender: FDA-Public Use
  Company Number: US-MPIJNJ-2013MPI000823

PATIENT
  Age: 58 Year
  Sex: Female
  Weight: 54.59 kg

DRUGS (2)
  1. VELCADE [Suspect]
     Indication: PLASMA CELL MYELOMA
     Dosage: 1.9 MG, ON DAYS 1, 4, 8 AND  11
     Route: 042
     Dates: start: 20100601, end: 20101216
  2. DECADRON /00016001/ [Suspect]
     Indication: PLASMA CELL MYELOMA
     Route: 065

REACTIONS (6)
  - Critical illness polyneuropathy [Unknown]
  - Respiratory failure [Recovered/Resolved]
  - Sepsis syndrome [Unknown]
  - Acute respiratory distress syndrome [Unknown]
  - Renal failure [Recovering/Resolving]
  - Pleural effusion [Recovered/Resolved]
